FAERS Safety Report 20576020 (Version 2)
Quarter: 2022Q2

REPORT INFORMATION
  Report Type: Report from Study
  Country: US (occurrence: US)
  Receive Date: 20220310
  Receipt Date: 20220425
  Transmission Date: 20220721
  Serious: Yes (Hospitalization, Other)
  Sender: FDA-Public Use
  Company Number: US-ABBVIE-22K-163-4308698-00

PATIENT
  Sex: Male

DRUGS (5)
  1. DUOPA [Suspect]
     Active Substance: CARBIDOPA\LEVODOPA
     Indication: Product used for unknown indication
     Route: 050
  2. DUOPA [Suspect]
     Active Substance: CARBIDOPA\LEVODOPA
  3. SINEMET [Concomitant]
     Active Substance: CARBIDOPA\LEVODOPA
     Indication: Product used for unknown indication
  4. APOKYN [Concomitant]
     Active Substance: APOMORPHINE HYDROCHLORIDE
     Indication: Product used for unknown indication
  5. AMANTADINE [Concomitant]
     Active Substance: AMANTADINE
     Indication: Product used for unknown indication

REACTIONS (8)
  - Pain in extremity [Unknown]
  - Gastrointestinal oedema [Unknown]
  - Cerebral haemorrhage [Recovered/Resolved]
  - Gastrointestinal disorder [Unknown]
  - Fall [Recovered/Resolved]
  - Muscle rigidity [Recovering/Resolving]
  - Intestinal obstruction [Unknown]
  - Device physical property issue [Recovered/Resolved]

NARRATIVE: CASE EVENT DATE: 20220101
